FAERS Safety Report 4759670-0 (Version None)
Quarter: 2005Q3

REPORT INFORMATION
  Report Type: 
  Country: None (occurrence: None)
  Receive Date: 20050901
  Receipt Date: 20050609
  Transmission Date: 20060218
  Serious: Yes (Hospitalization, Disabling)
  Sender: FDA-Public Use
  Company Number: US-MERCK-0506USA01478

PATIENT
  Age: 66 Year
  Sex: Female
  Weight: 90 kg

DRUGS (3)
  1. VIOXX [Suspect]
     Indication: OSTEOARTHRITIS
     Route: 048
     Dates: start: 20011205, end: 20040930
  2. NEXIUM [Concomitant]
     Indication: GASTROOESOPHAGEAL REFLUX DISEASE
     Route: 065
  3. ROBAXIN [Concomitant]
     Indication: ARTHRALGIA
     Route: 065
     Dates: end: 20011201

REACTIONS (5)
  - BLOOD DISORDER [None]
  - CATARACT [None]
  - HAEMORRHAGIC DISORDER [None]
  - NEOPLASM MALIGNANT [None]
  - PULMONARY EMBOLISM [None]
